FAERS Safety Report 10037228 (Version 1)
Quarter: 2014Q1

REPORT INFORMATION
  Report Type: Spontaneous
  Country: US (occurrence: None)
  Receive Date: 20140325
  Receipt Date: 20140325
  Transmission Date: 20141002
  Serious: Yes (Other)
  Sender: FDA-Public Use
  Company Number: None

PATIENT
  Age: 38 Year
  Sex: Female
  Weight: 104.33 kg

DRUGS (1)
  1. ACYCLOVIR [Suspect]
     Indication: HERPES SIMPLEX
     Dosage: TAKE 1 TAB 5 TIMES DAILY?5 TIMES DAILY ?TAKEN BY MOUTH
     Route: 048
     Dates: start: 20140317

REACTIONS (1)
  - Haemorrhage [None]
